FAERS Safety Report 10505093 (Version 8)
Quarter: 2015Q2

REPORT INFORMATION
  Report Type: Report from Study
  Country: GB (occurrence: GB)
  Receive Date: 20141008
  Receipt Date: 20150428
  Transmission Date: 20150821
  Serious: Yes (Hospitalization)
  Sender: FDA-Public Use
  Company Number: GB-009507513-1410GBR002845

PATIENT
  Age: 51 Year
  Sex: Female
  Weight: 65.6 kg

DRUGS (10)
  1. SODIUM CHLORIDE. [Concomitant]
     Active Substance: SODIUM CHLORIDE
     Dosage: 1 L, ONCE
     Route: 042
     Dates: start: 20140522, end: 20140522
  2. ACETAMINOPHEN AND CODEINE [Concomitant]
     Active Substance: ACETAMINOPHEN\CODEINE PHOSPHATE
     Indication: HEPATIC PAIN
     Dosage: UNK UNK, PRN
     Route: 048
     Dates: start: 20140505
  3. SODIUM CHLORIDE. [Concomitant]
     Active Substance: SODIUM CHLORIDE
     Indication: DEHYDRATION
     Dosage: 1 L, TID
     Route: 042
     Dates: start: 20140521, end: 20140521
  4. PEMBROLIZUMAB. [Suspect]
     Active Substance: PEMBROLIZUMAB
     Indication: MALIGNANT MELANOMA
     Dosage: 10 MG/KG, QOW
     Route: 042
     Dates: start: 20131223, end: 20140407
  5. PEMBROLIZUMAB. [Suspect]
     Active Substance: PEMBROLIZUMAB
     Dosage: 10 MG/KG, QOW
     Route: 042
     Dates: start: 20140424, end: 20140424
  6. TAZOCIN [Concomitant]
     Active Substance: PIPERACILLIN SODIUM\TAZOBACTAM SODIUM
     Indication: DIARRHOEA
     Dosage: 4.5 G, ONCE
     Route: 042
     Dates: start: 20140521, end: 20140521
  7. MIRTAZAPINE. [Concomitant]
     Active Substance: MIRTAZAPINE
     Indication: ANXIETY
     Dosage: UNK
     Route: 048
     Dates: start: 20131109
  8. UROKINASE [Concomitant]
     Active Substance: UROKINASE
     Indication: THROMBOSIS
     Dosage: TOTAL DAILY DOSE: 10000 U, ONCE
     Route: 042
     Dates: start: 20140522, end: 20140522
  9. MEROPENEM. [Concomitant]
     Active Substance: MEROPENEM
     Indication: BACTERIAL SEPSIS
     Dosage: 1 G, TID
     Route: 042
     Dates: start: 20140521, end: 20140602
  10. FUROSEMIDE. [Concomitant]
     Active Substance: FUROSEMIDE
     Indication: DIARRHOEA
     Dosage: 20 MG, ONCE
     Route: 048
     Dates: start: 20140520, end: 20140520

REACTIONS (4)
  - Diarrhoea [Recovered/Resolved]
  - Abdominal distension [Recovered/Resolved]
  - Bacterial sepsis [Recovered/Resolved]
  - Hypotension [Recovered/Resolved]

NARRATIVE: CASE EVENT DATE: 20140522
